FAERS Safety Report 5134950-8 (Version None)
Quarter: 2006Q4

REPORT INFORMATION
  Report Type: 
  Country: None (occurrence: None)
  Receive Date: 20061018
  Receipt Date: 20061012
  Transmission Date: 20070319
  Serious: Yes (Life-Threatening, Hospitalization, Other)
  Sender: FDA-Public Use
  Company Number: HQWYE754103AUG06

PATIENT
  Age: 55 Year
  Sex: Female
  Weight: 77.18 kg

DRUGS (11)
  1. CEFTRIAXONE [Suspect]
     Indication: ABDOMINAL INFECTION
     Dosage: 2 G 1X PER 1 DAY, INTRAVENOUS
     Route: 042
     Dates: start: 20060728, end: 20060730
  2. METRONIDAZOLE [Suspect]
     Indication: ABDOMINAL INFECTION
     Dosage: 500 MG 1X PER 8 HR, INTRAVENOUS
     Route: 042
     Dates: start: 20060728, end: 20060730
  3. POTASSIUM CHLORIDE [Concomitant]
  4. FENTANYL [Concomitant]
  5. LACTATED RINGER'S (CALCIUM CHLORIDE DIHYDRATE/POTASSIUM CHLORIDE SODIU [Concomitant]
  6. MORHINE SULFATE (MORPHINE SULFATE) [Concomitant]
  7. PHOSPHATES SODIUM (PHOSPHATES/SODIUM PHOSPHATE MONOBASIC) [Concomitant]
  8. DULCOLAX (BISACODYL LOVENOX (HEPARIN-FRACTION, SODIUM SALT) [Concomitant]
  9. IPRATROPIUM/ALBUTEROL (IPRATROPIUM/ALBUTEROL) [Concomitant]
  10. ZOFRAN [Concomitant]
  11. PEPCID [Concomitant]

REACTIONS (5)
  - DRUG HYPERSENSITIVITY [None]
  - FLUID OVERLOAD [None]
  - LARYNGEAL OEDEMA [None]
  - RESPIRATORY DISTRESS [None]
  - URINE OUTPUT DECREASED [None]
